FAERS Safety Report 25412289 (Version 2)
Quarter: 2025Q2

REPORT INFORMATION
  Report Type: Spontaneous
  Country: US (occurrence: None)
  Receive Date: 20250609
  Receipt Date: 20250624
  Transmission Date: 20250717
  Serious: No
  Sender: UMEDICA LABS
  Company Number: US-Umedica-000668

PATIENT
  Age: 69 Year
  Sex: Male

DRUGS (8)
  1. CARBAMAZEPINE [Suspect]
     Active Substance: CARBAMAZEPINE
     Indication: Occipital neuralgia
     Dosage: 1 TABLET DAILY AT NIGHT
     Route: 048
     Dates: start: 20250515, end: 20250522
  2. SYNTHROID [Suspect]
     Active Substance: LEVOTHYROXINE SODIUM
     Indication: Hypothyroidism
  3. CYMBALTA [Suspect]
     Active Substance: DULOXETINE HYDROCHLORIDE
  4. GABAPENTIN [Suspect]
     Active Substance: GABAPENTIN
  5. CRESTOR [Suspect]
     Active Substance: ROSUVASTATIN CALCIUM
  6. VITAMIN D [Suspect]
     Active Substance: VITAMIN D NOS
  7. VITAMIN B12 [Suspect]
     Active Substance: CYANOCOBALAMIN
  8. VITAMINS [Suspect]
     Active Substance: VITAMINS

REACTIONS (12)
  - Headache [Unknown]
  - Influenza like illness [Unknown]
  - Rash [Unknown]
  - Pruritus [Unknown]
  - Dysphagia [Unknown]
  - Oral mucosal blistering [Unknown]
  - Mouth injury [Unknown]
  - Lip swelling [Unknown]
  - Mouth swelling [Unknown]
  - Oral pain [Unknown]
  - Product use in unapproved indication [Unknown]
  - Rhinorrhoea [Unknown]

NARRATIVE: CASE EVENT DATE: 20250501
